FAERS Safety Report 19750685 (Version 4)
Quarter: 2022Q2

REPORT INFORMATION
  Report Type: Spontaneous
  Country: US (occurrence: US)
  Receive Date: 20210826
  Receipt Date: 20220531
  Transmission Date: 20220721
  Serious: Yes (Other)
  Sender: FDA-Public Use
  Company Number: US-PFIZER INC-2020211357

PATIENT
  Age: 59 Year
  Sex: Female

DRUGS (1)
  1. IBRANCE [Suspect]
     Active Substance: PALBOCICLIB
     Indication: Major depression
     Dosage: 125 MG

REACTIONS (6)
  - Lower limb fracture [Unknown]
  - Hip fracture [Unknown]
  - Off label use [Unknown]
  - Product dose omission issue [Unknown]
  - Gait disturbance [Unknown]
  - Neoplasm progression [Unknown]
